FAERS Safety Report 22089577 (Version 2)
Quarter: 2023Q2

REPORT INFORMATION
  Report Type: Spontaneous
  Country: US (occurrence: US)
  Receive Date: 20230313
  Receipt Date: 20230517
  Transmission Date: 20230722
  Serious: No
  Sender: FDA-Public Use
  Company Number: US-drreddys-SPO/USA/23/0160896

PATIENT
  Age: 63 Year
  Sex: Female

DRUGS (2)
  1. SUMATRIPTAN [Suspect]
     Active Substance: SUMATRIPTAN
     Indication: Migraine
     Dosage: 6MG/0.5ML 2 X 1 SINGLE DOSE
     Route: 058
  2. EPIPEN [Concomitant]
     Active Substance: EPINEPHRINE
     Indication: Hypersensitivity

REACTIONS (4)
  - Urticaria [Recovered/Resolved]
  - Rash [Unknown]
  - Hypersensitivity [Unknown]
  - Product quality issue [Unknown]
